FAERS Safety Report 14160089 (Version 4)
Quarter: 2018Q1

REPORT INFORMATION
  Report Type: Report from Study
  Country: JP (occurrence: JP)
  Receive Date: 20171103
  Receipt Date: 20180330
  Transmission Date: 20180508
  Serious: Yes (Hospitalization)
  Sender: FDA-Public Use
  Company Number: JP-ROCHE-1912597

PATIENT
  Age: 63 Year
  Sex: Male
  Weight: 62.9 kg

DRUGS (23)
  1. ATEZOLIZUMAB. [Suspect]
     Active Substance: ATEZOLIZUMAB
     Dosage: CYCLE 3
     Route: 042
     Dates: start: 20170126
  2. ATEZOLIZUMAB. [Suspect]
     Active Substance: ATEZOLIZUMAB
     Indication: NON-SMALL CELL LUNG CANCER STAGE IV
     Dosage: CYCLE 1 DAY 1
     Route: 042
     Dates: start: 20161215
  3. NAB-PACLITAXEL [Suspect]
     Active Substance: PACLITAXEL
     Dosage: CYCLE 4?MOST RECENT DOSE (171MG) OF PACLITAXEL ALBUMIN: 23/FEB/2017
     Route: 042
     Dates: start: 20170216
  4. LIPITOR [Concomitant]
     Active Substance: ATORVASTATIN CALCIUM
     Indication: HYPERLIPIDAEMIA
     Route: 065
     Dates: start: 2013
  5. ALOXI [Concomitant]
     Active Substance: PALONOSETRON HYDROCHLORIDE
     Indication: PREMEDICATION
     Route: 065
     Dates: start: 20170223, end: 20170223
  6. CEFCAPENE PIVOXIL HYDROCHLORIDE [Concomitant]
     Active Substance: CEFCAPENE PIVOXIL HYDROCHLORIDE
     Indication: TUMOUR ASSOCIATED FEVER
     Route: 065
     Dates: start: 20170426, end: 20170427
  7. ATEZOLIZUMAB. [Suspect]
     Active Substance: ATEZOLIZUMAB
     Dosage: CYCLE 2
     Route: 042
     Dates: start: 20170105
  8. NAB-PACLITAXEL [Suspect]
     Active Substance: PACLITAXEL
     Indication: NON-SMALL CELL LUNG CANCER STAGE IV
     Dosage: CYCLE 1 DAY 1?MOST RECENT DOSE 171 MG: 23/FEB/2017
     Route: 042
     Dates: start: 20161215
  9. CARBOPLATIN. [Suspect]
     Active Substance: CARBOPLATIN
     Dosage: TARGET AREA UNDER THE CONCENTRATION CURVE (AUC) 6 MG/ML/MIN?CYCLE 2
     Route: 042
     Dates: start: 20170105
  10. CARBOPLATIN. [Suspect]
     Active Substance: CARBOPLATIN
     Dosage: CYCLE 4?MOST RECENT DOSE PRIOR TO SAE
     Route: 042
     Dates: start: 20170216
  11. IR-RBC-LR [Concomitant]
     Indication: ANAEMIA
     Route: 065
     Dates: start: 20170307, end: 20170307
  12. ATEZOLIZUMAB. [Suspect]
     Active Substance: ATEZOLIZUMAB
     Dosage: CYCLE 4
     Route: 042
     Dates: start: 20170216
  13. NAB-PACLITAXEL [Suspect]
     Active Substance: PACLITAXEL
     Dosage: CYCLE 2
     Route: 042
     Dates: start: 20170105
  14. CARBOPLATIN. [Suspect]
     Active Substance: CARBOPLATIN
     Dosage: TARGET AREA UNDER THE CONCENTRATION CURVE (AUC) 6 MG/ML/MIN?CYCLE 3
     Route: 042
     Dates: start: 20170126
  15. NEUTROGIN [Concomitant]
     Active Substance: LENOGRASTIM
     Indication: NEUTROPHIL COUNT DECREASED
     Route: 065
     Dates: start: 20170302, end: 20170302
  16. CARBOPLATIN. [Suspect]
     Active Substance: CARBOPLATIN
     Indication: NON-SMALL CELL LUNG CANCER STAGE IV
     Dosage: TARGET AREA UNDER THE CONCENTRATION CURVE (AUC) 6 MG/ML/MIN ON DAY 1 OF EACH 21-DAY CYCLE ?CYCLE 1 D
     Route: 042
     Dates: start: 20161215
  17. MAGNESIUM OXIDE. [Concomitant]
     Active Substance: MAGNESIUM OXIDE
     Indication: CONSTIPATION
     Route: 065
     Dates: start: 20170112
  18. LOXOPROFEN [Concomitant]
     Active Substance: LOXOPROFEN
     Indication: ARTHRALGIA
     Route: 065
     Dates: start: 20170302, end: 20170304
  19. LANSOPRAZOLE. [Concomitant]
     Active Substance: LANSOPRAZOLE
     Indication: GASTRITIS
     Route: 065
     Dates: start: 20170330
  20. ATEZOLIZUMAB. [Suspect]
     Active Substance: ATEZOLIZUMAB
     Dosage: CYCLE 5- MAINTENANCE PHASE?MOST RECENT DOSE: 09/MAR/2017
     Route: 042
     Dates: start: 20170309
  21. ATEZOLIZUMAB. [Suspect]
     Active Substance: ATEZOLIZUMAB
     Dosage: CYCLE 6, DAY 1
     Route: 042
     Dates: start: 20170420, end: 20170427
  22. NAB-PACLITAXEL [Suspect]
     Active Substance: PACLITAXEL
     Dosage: CYCLE 3
     Route: 042
     Dates: start: 20170126
  23. LYRICA [Concomitant]
     Active Substance: PREGABALIN
     Indication: NEUROPATHY PERIPHERAL
     Route: 065
     Dates: start: 20170302

REACTIONS (1)
  - Hypopituitarism [Recovering/Resolving]

NARRATIVE: CASE EVENT DATE: 20170325
